FAERS Safety Report 4521688-0 (Version None)
Quarter: 2004Q4

REPORT INFORMATION
  Report Type: 
  Country: None (occurrence: None)
  Receive Date: 20041206
  Receipt Date: 20041118
  Transmission Date: 20050328
  Serious: Yes (Disabling)
  Sender: FDA-Public Use
  Company Number: 2004AP05954

PATIENT
  Age: 22 Year
  Sex: Male

DRUGS (2)
  1. MARCAINE [Suspect]
     Indication: INTERVERTEBRAL DISC PROTRUSION
     Dosage: 4 ML ONCE ED
     Dates: start: 20041005, end: 20041005
  2. MARCAINE [Suspect]
     Indication: SURGERY
     Dosage: 4 ML ONCE ED
     Dates: start: 20041005, end: 20041005

REACTIONS (5)
  - ABASIA [None]
  - CONVULSION [None]
  - DEPRESSED LEVEL OF CONSCIOUSNESS [None]
  - PYREXIA [None]
  - SPINAL CORD INFARCTION [None]
